FAERS Safety Report 20568124 (Version 3)
Quarter: 2022Q2

REPORT INFORMATION
  Report Type: Report from Study
  Country: AU (occurrence: None)
  Receive Date: 20220308
  Receipt Date: 20220426
  Transmission Date: 20220721
  Serious: Yes (Hospitalization, Other)
  Sender: FDA-Public Use
  Company Number: AU-Merck Healthcare KGaA-9303554

PATIENT
  Sex: Male

DRUGS (3)
  1. BAVENCIO [Suspect]
     Active Substance: AVELUMAB
     Indication: Transitional cell carcinoma metastatic
     Dosage: 690MG OVER 60MIN
     Route: 042
  2. LORATADINE [Concomitant]
     Active Substance: LORATADINE
     Indication: Premedication
     Dosage: RECEIVED 60 MIN PRIOR TO AVELUMAB
  3. ACETAMINOPHEN [Concomitant]
     Active Substance: ACETAMINOPHEN
     Indication: Premedication
     Dosage: RECEIVED 60 MIN PRIOR TO AVELUMAB

REACTIONS (6)
  - Supraventricular tachycardia [Recovered/Resolved]
  - Hypoxia [Recovered/Resolved]
  - Acute pulmonary oedema [Recovered/Resolved]
  - Confusional state [Recovered/Resolved]
  - Chills [Recovered/Resolved]
  - Hypersensitivity [Unknown]
